FAERS Safety Report 4405192-6 (Version None)
Quarter: 2004Q3

REPORT INFORMATION
  Report Type: 
  Country: None (occurrence: None)
  Receive Date: 20040723
  Receipt Date: 20040715
  Transmission Date: 20050211
  Serious: Yes (Hospitalization)
  Sender: FDA-Public Use
  Company Number: JP-ROCHE-374363

PATIENT
  Age: 72 Year
  Sex: Male

DRUGS (4)
  1. TICLOPIDINE HCL [Suspect]
     Indication: DRUG USE FOR UNKNOWN INDICATION
     Route: 048
     Dates: start: 20040610, end: 20040621
  2. ACECOL [Concomitant]
     Route: 048
     Dates: start: 19970202
  3. BUFFERIN [Concomitant]
     Route: 048
     Dates: start: 20030303
  4. CYANOCOBALAMIN [Concomitant]
     Route: 048
     Dates: start: 20030814

REACTIONS (3)
  - CONJUNCTIVAL HYPERAEMIA [None]
  - PYREXIA [None]
  - RASH [None]
